FAERS Safety Report 20610671 (Version 2)
Quarter: 2022Q2

REPORT INFORMATION
  Report Type: Spontaneous
  Country: FR (occurrence: FR)
  Receive Date: 20220318
  Receipt Date: 20220407
  Transmission Date: 20220721
  Serious: Yes (Hospitalization)
  Sender: FDA-Public Use
  Company Number: None

PATIENT
  Age: 87 Year
  Sex: Male

DRUGS (8)
  1. FUROSEMIDE [Suspect]
     Active Substance: FUROSEMIDE
     Indication: Hypertension
     Dosage: THERAPY START DATE : ASKU, 80MG
     Route: 048
  2. FERROUS SULFATE [Suspect]
     Active Substance: FERROUS SULFATE
     Indication: Iron deficiency anaemia
     Dosage: THERAPY START DATE : ASKU, 2 DOSAGE FORMS
     Route: 048
  3. CORDARONE [Suspect]
     Active Substance: AMIODARONE HYDROCHLORIDE
     Indication: Atrial fibrillation
     Dosage: 5 DOSAGE FORMS, SCORED TABLET
     Route: 048
     Dates: start: 20210504, end: 20220217
  4. ELIQUIS [Suspect]
     Active Substance: APIXABAN
     Indication: Atrial fibrillation
     Dosage: THERAPY START DATE : ASKU, 5MG
     Route: 048
  5. BISOPROLOL [Suspect]
     Active Substance: BISOPROLOL
     Indication: Hypertension
     Dosage: THERAPY START DATE : ASKU, 5MG
     Route: 048
  6. FOLIC ACID [Suspect]
     Active Substance: FOLIC ACID
     Indication: Folate deficiency
     Dosage: THERAPY START DATE : ASKU, 2 DOSAGE FORMS
     Route: 048
  7. COMIRNATY [Suspect]
     Active Substance: TOZINAMERAN
     Indication: COVID-19 immunisation
     Dosage: COMIRNATY 30 MICROGRAMS/DOSE, DISPERSION FOR INJECTION. MRNA (MODIFIED NUCLEOSIDE) VACCINE AGAINST C
     Route: 030
     Dates: start: 20210421, end: 20211202
  8. CAPECITABINE [Concomitant]
     Active Substance: CAPECITABINE
     Dosage: UNIT DOSE: 4000 MG, FREQUENCY TIME 2 WEEKS, DURATION 27 DAYS
     Route: 048
     Dates: start: 20210601, end: 20210628

REACTIONS (1)
  - Axonal neuropathy [Not Recovered/Not Resolved]

NARRATIVE: CASE EVENT DATE: 20220215
